FAERS Safety Report 8119972-7 (Version None)
Quarter: 2012Q1

REPORT INFORMATION
  Report Type: 
  Country: None (occurrence: None)
  Receive Date: 20120206
  Receipt Date: 20120206
  Transmission Date: 20120608
  Serious: Yes (Life-Threatening, Disabling)
  Sender: FDA-Public Use
  Company Number: None

PATIENT

DRUGS (2)
  1. EPINEPHRINE [Suspect]
     Dosage: 1 TIME
  2. LIDOCAINE 2% [Suspect]
     Dosage: 1 TIME

REACTIONS (3)
  - PHARYNGEAL OEDEMA [None]
  - FACE OEDEMA [None]
  - SWELLING FACE [None]
